FAERS Safety Report 7000516-8 (Version None)
Quarter: 2010Q3

REPORT INFORMATION
  Report Type: 
  Country: None (occurrence: None)
  Receive Date: 20100920
  Receipt Date: 20071109
  Transmission Date: 20110219
  Serious: Yes (Other)
  Sender: FDA-Public Use
  Company Number: US-ASTRAZENECA-2006UW03273

PATIENT
  Sex: Female
  Weight: 52.2 kg

DRUGS (10)
  1. SEROQUEL [Suspect]
     Indication: DEPRESSION
     Route: 048
     Dates: start: 20050201
  2. SEROQUEL [Suspect]
     Indication: BIPOLAR DISORDER
     Route: 048
     Dates: start: 20050201
  3. SEROQUEL [Suspect]
     Indication: ANXIETY
     Route: 048
     Dates: start: 20050201
  4. SEROQUEL [Suspect]
     Route: 048
     Dates: start: 20050201
  5. SEROQUEL [Suspect]
     Route: 048
     Dates: start: 20050201
  6. SEROQUEL [Suspect]
     Route: 048
     Dates: start: 20050201
  7. RISPERDAL [Concomitant]
  8. ZYPREXA [Concomitant]
     Dates: start: 20020927, end: 20040430
  9. ACETAMINOPHEN AND HYDROCODONE BITARTRATE [Concomitant]
     Dosage: 7.5-650
  10. ACETAMINOPHEN AND HYDROCODONE BITARTRATE [Concomitant]
     Dosage: 7.5-750,10-650, DISPENSED
     Dates: start: 20020819

REACTIONS (2)
  - DIABETES MELLITUS [None]
  - PANCREATITIS [None]
